FAERS Safety Report 7374189-9 (Version None)
Quarter: 2011Q1

REPORT INFORMATION
  Report Type: 
  Country: None (occurrence: None)
  Receive Date: 20110325
  Receipt Date: 20110317
  Transmission Date: 20110831
  Serious: Yes (Other)
  Sender: FDA-Public Use
  Company Number: US-PFIZER INC-2010182486

PATIENT
  Sex: Female

DRUGS (2)
  1. ALBUTEROL [Concomitant]
     Indication: CHRONIC OBSTRUCTIVE PULMONARY DISEASE
     Dosage: UNK
     Dates: start: 20030101
  2. CHANTIX [Suspect]
     Indication: SMOKING CESSATION THERAPY
     Dosage: STARTER PACK
     Dates: start: 20071201, end: 20080201

REACTIONS (7)
  - LOSS OF CONSCIOUSNESS [None]
  - DEPRESSION [None]
  - AMNESIA [None]
  - ABNORMAL DREAMS [None]
  - HALLUCINATION [None]
  - ROAD TRAFFIC ACCIDENT [None]
  - ANXIETY DISORDER [None]
